FAERS Safety Report 7466763-6 (Version None)
Quarter: 2011Q2

REPORT INFORMATION
  Report Type: 
  Country: None (occurrence: None)
  Receive Date: 20110509
  Receipt Date: 20100902
  Transmission Date: 20111010
  Serious: No
  Sender: FDA-Public Use
  Company Number: US-ALEXION-A201001125

PATIENT
  Sex: Female

DRUGS (2)
  1. SOLIRIS [Suspect]
     Indication: PAROXYSMAL NOCTURNAL HAEMOGLOBINURIA
     Dosage: 600 MG, QW
     Route: 042
     Dates: start: 20081001, end: 20081101
  2. SOLIRIS [Suspect]
     Dosage: 900 MG, Q2W
     Route: 042
     Dates: start: 20081101

REACTIONS (7)
  - HYPERSENSITIVITY [None]
  - HEADACHE [None]
  - RASH PRURITIC [None]
  - ACTIVITIES OF DAILY LIVING IMPAIRED [None]
  - SINUSITIS [None]
  - HYPOAESTHESIA [None]
  - BACK PAIN [None]
